FAERS Safety Report 5811249-5 (Version None)
Quarter: 2008Q3

REPORT INFORMATION
  Report Type: 
  Country: None (occurrence: None)
  Receive Date: 20080716
  Receipt Date: 20080704
  Transmission Date: 20090109
  Serious: Yes (Death, Hospitalization)
  Sender: FDA-Public Use
  Company Number: CA-SP-2007-01488

PATIENT
  Age: 73 Year
  Sex: Male

DRUGS (1)
  1. IMOGAM RABIES [Suspect]
     Indication: ACCIDENTAL EXPOSURE
     Dosage: 1200 UNITS
     Route: 030

REACTIONS (14)
  - ASTHENIA [None]
  - BRAIN DEATH [None]
  - DYSPHAGIA [None]
  - ENCEPHALITIS [None]
  - GENERAL PHYSICAL HEALTH DETERIORATION [None]
  - IRRITABILITY [None]
  - LETHARGY [None]
  - MUSCLE SPASMS [None]
  - MYOCLONUS [None]
  - PAIN [None]
  - POSTURING [None]
  - PYREXIA [None]
  - RABIES [None]
  - SALIVARY HYPERSECRETION [None]
